FAERS Safety Report 5105876-0 (Version None)
Quarter: 2006Q3

REPORT INFORMATION
  Report Type: 
  Country: None (occurrence: None)
  Receive Date: 20060915
  Receipt Date: 20060905
  Transmission Date: 20061208
  Serious: Yes (Hospitalization)
  Sender: FDA-Public Use
  Company Number: FR-GLAXOSMITHKLINE-B0437444B

PATIENT
  Age: 1 Day
  Sex: Female
  Weight: 2.7 kg

DRUGS (4)
  1. DEROXAT [Suspect]
     Dates: start: 20050101, end: 20050626
  2. LEXOMIL [Concomitant]
     Dates: start: 20050101, end: 20050626
  3. ZOLOFT [Concomitant]
     Dates: start: 20050101, end: 20050101
  4. SERESTA [Concomitant]
     Dates: start: 20050101, end: 20050101

REACTIONS (14)
  - AGITATION [None]
  - CAESAREAN SECTION [None]
  - CEPHALO-PELVIC DISPROPORTION [None]
  - CRYING [None]
  - DIARRHOEA NEONATAL [None]
  - DRUG EXPOSURE DURING PREGNANCY [None]
  - HYPERTONIA [None]
  - PREGNANCY [None]
  - PREMATURE RUPTURE OF MEMBRANES [None]
  - REGURGITATION OF FOOD [None]
  - SUICIDE ATTEMPT [None]
  - TREMOR [None]
  - VOMITING NEONATAL [None]
  - YAWNING [None]
